FAERS Safety Report 8020141-X (Version None)
Quarter: 2012Q1

REPORT INFORMATION
  Report Type: 
  Country: None (occurrence: None)
  Receive Date: 20120103
  Receipt Date: 20111219
  Transmission Date: 20120608
  Serious: Yes (Death)
  Sender: FDA-Public Use
  Company Number: US-PFIZER INC-2011308743

PATIENT
  Age: 57 Year
  Sex: Female

DRUGS (8)
  1. DILTIAZEM HCL [Suspect]
  2. GABAPENTIN [Suspect]
  3. VENLAFAXINE HCL [Suspect]
  4. DIPHENHYDRAMINE HCL [Suspect]
  5. BACLOFEN [Suspect]
  6. METHOTREXATE SODIUM [Suspect]
  7. CLONAZEPAM [Suspect]
  8. FLUOXETINE HCL [Suspect]

REACTIONS (1)
  - COMPLETED SUICIDE [None]
